FAERS Safety Report 5478607-2 (Version None)
Quarter: 2007Q4

REPORT INFORMATION
  Report Type: 
  Country: None (occurrence: None)
  Receive Date: 20071005
  Receipt Date: 20071001
  Transmission Date: 20080405
  Serious: Yes (Other)
  Sender: FDA-Public Use
  Company Number: US-SHR-US-2007-034710

PATIENT
  Age: 44 Year
  Sex: Female
  Weight: 70 kg

DRUGS (1)
  1. MIRENA [Suspect]
     Indication: MENSTRUATION IRREGULAR
     Dosage: 20 A?G/DAY, CONT
     Route: 015
     Dates: start: 20070815, end: 20070914

REACTIONS (6)
  - ABDOMINAL DISTENSION [None]
  - DEPRESSION SUICIDAL [None]
  - FLUID RETENTION [None]
  - URTICARIA [None]
  - VAGINAL HAEMORRHAGE [None]
  - WEIGHT INCREASED [None]
